FAERS Safety Report 20573190 (Version 1)
Quarter: 2022Q1

REPORT INFORMATION
  Report Type: Spontaneous
  Country: US (occurrence: US)
  Receive Date: 20220309
  Receipt Date: 20220309
  Transmission Date: 20220423
  Serious: No
  Sender: FDA-Public Use
  Company Number: US-PFIZER INC-202200223511

PATIENT
  Age: 5 Year

DRUGS (2)
  1. MEROPENEM [Suspect]
     Active Substance: MEROPENEM
     Dosage: UNK
  2. FORTAZ [Suspect]
     Active Substance: CEFTAZIDIME SODIUM
     Dosage: UNK

REACTIONS (1)
  - Drug resistance [Unknown]
